FAERS Safety Report 5340995-5 (Version None)
Quarter: 2007Q2

REPORT INFORMATION
  Report Type: 
  Country: None (occurrence: None)
  Receive Date: 20070405
  Receipt Date: 20070123
  Transmission Date: 20071010
  Serious: No
  Sender: FDA-Public Use
  Company Number: US200701004767

PATIENT
  Age: 44 Year
  Sex: Female
  Weight: 59.9 kg

DRUGS (1)
  1. CYMBALTA [Suspect]
     Indication: DEPRESSION
     Dosage: 30 MG DAILY (1/D), UNK
     Dates: start: 20070122, end: 20070123

REACTIONS (6)
  - ABDOMINAL PAIN [None]
  - DIARRHOEA [None]
  - DIZZINESS [None]
  - EARLY MORNING AWAKENING [None]
  - FLUSHING [None]
  - NAUSEA [None]
